FAERS Safety Report 9882226 (Version 1)
Quarter: 2014Q1

REPORT INFORMATION
  Report Type: Spontaneous
  Country: US (occurrence: US)
  Receive Date: 20140207
  Receipt Date: 20140207
  Transmission Date: 20141002
  Serious: Yes (Other)
  Sender: FDA-Public Use
  Company Number: PHHY2014US013151

PATIENT
  Age: 26 Year
  Sex: Female

DRUGS (5)
  1. CICLOSPORIN [Suspect]
     Indication: IMMUNOSUPPRESSION
     Dosage: 200 MG, BID
     Route: 048
  2. HYDRALAZINE [Suspect]
     Dosage: 50 MG, QID
  3. PREDNISONE [Suspect]
     Indication: IMMUNOSUPPRESSION
     Dosage: 10 MG, UNK
  4. FUROSEMIDE [Suspect]
     Dosage: 40 MG, QD
  5. FERROUS SULPHATE [Suspect]
     Dosage: 300 MG, TID

REACTIONS (3)
  - Immunosuppressant drug level increased [Unknown]
  - Maternal exposure during pregnancy [Unknown]
  - Normal newborn [Unknown]
